FAERS Safety Report 13393398 (Version 1)
Quarter: 2017Q1

REPORT INFORMATION
  Report Type: Spontaneous
  Country: US (occurrence: US)
  Receive Date: 20170331
  Receipt Date: 20170331
  Transmission Date: 20170429
  Serious: No
  Sender: FDA-Public Use
  Company Number: US-SEPTODONT-201603536

PATIENT
  Age: 64 Year
  Sex: Female
  Weight: 95.3 kg

DRUGS (3)
  1. PANTOPRAZOLE SODIUM. [Concomitant]
     Active Substance: PANTOPRAZOLE SODIUM
  2. LIDOCAINE HYDROCHLORIDE 2% WITH EPINEPHRINE 1:100,000 INJECTION [Suspect]
     Active Substance: EPINEPHRINE\LIDOCAINE HYDROCHLORIDE
     Indication: LOCAL ANAESTHESIA
     Dosage: LEFT BLOCK WITH HENRY SCHEIN1 3/8^ 27G NEEDLE
     Route: 004
     Dates: start: 2016, end: 2016
  3. ULTRACARE ANESTHETIC 6.96 G/30ML GEL [Concomitant]
     Route: 061
     Dates: start: 2016, end: 2016

REACTIONS (3)
  - Pain in jaw [Recovered/Resolved]
  - Joint stiffness [Recovered/Resolved]
  - Abnormal sensation in eye [Recovered/Resolved]

NARRATIVE: CASE EVENT DATE: 20160603
